FAERS Safety Report 12798512 (Version 3)
Quarter: 2016Q4

REPORT INFORMATION
  Report Type: Spontaneous
  Country: BE (occurrence: BE)
  Receive Date: 20160930
  Receipt Date: 20161024
  Transmission Date: 20170207
  Serious: Yes (Other)
  Sender: FDA-Public Use
  Company Number: BE-JNJFOC-20160929093

PATIENT
  Sex: Male
  Weight: 108 kg

DRUGS (7)
  1. HALDOL DECANOATE [Suspect]
     Active Substance: HALOPERIDOL DECANOATE
     Indication: PRODUCT USED FOR UNKNOWN INDICATION
     Dosage: SINCE THE END OF JUNE.4 AMPOULESTOTAL DAILY DOSE 400 MG/MONTH
     Route: 065
     Dates: start: 20160627, end: 20161003
  2. CLOPIXOL (DECANOATE) [Concomitant]
     Active Substance: ZUCLOPENTHIXOL DECANOATE
     Dosage: TOTAL DAILY DOSE: 400 MG/MONTH
     Route: 065
  3. DOMINA [Concomitant]
     Route: 065
  4. CETRIZINE [Concomitant]
     Active Substance: CETIRIZINE HYDROCHLORIDE
     Route: 065
  5. ETOMINE [Concomitant]
     Route: 065
  6. LORMETAZEPAM [Concomitant]
     Active Substance: LORMETAZEPAM
     Route: 065
  7. DAFLON [Concomitant]
     Active Substance: DIOSMIN\HESPERIDIN
     Route: 065

REACTIONS (4)
  - Injection site erythema [Recovering/Resolving]
  - Induration [Recovering/Resolving]
  - Cyst [Recovering/Resolving]
  - Erysipelas [Recovering/Resolving]
